FAERS Safety Report 20417491 (Version 2)
Quarter: 2022Q1

REPORT INFORMATION
  Report Type: Spontaneous
  Country: CN (occurrence: CN)
  Receive Date: 20220202
  Receipt Date: 20220322
  Transmission Date: 20220423
  Serious: Yes (Hospitalization)
  Sender: FDA-Public Use
  Company Number: CN-PFIZER INC-202200123522

PATIENT
  Age: 57 Year
  Sex: Male
  Weight: 75 kg

DRUGS (2)
  1. AZITHROMYCIN [Suspect]
     Active Substance: AZITHROMYCIN
     Indication: Anti-infective therapy
     Dosage: 0.5 G, 1X/DAY
     Route: 048
     Dates: start: 20220120, end: 20220120
  2. AMOXICILLIN [Suspect]
     Active Substance: AMOXICILLIN
     Indication: Anti-infective therapy
     Dosage: 2 DF, 3X/DAY
     Route: 048
     Dates: start: 20220119, end: 20220119

REACTIONS (2)
  - Rash erythematous [Recovering/Resolving]
  - Swelling [Recovering/Resolving]

NARRATIVE: CASE EVENT DATE: 20220120
